FAERS Safety Report 9498921 (Version 1)
Quarter: 2013Q3

REPORT INFORMATION
  Report Type: Spontaneous
  Country: US (occurrence: US)
  Receive Date: 20130904
  Receipt Date: 20130904
  Transmission Date: 20140515
  Serious: Yes (Other)
  Sender: FDA-Public Use
  Company Number: CHPA2013US013674

PATIENT
  Sex: Male

DRUGS (1)
  1. ACETYLSALICYLIC ACID [Suspect]
     Dosage: UNK, UNK
     Route: 065

REACTIONS (2)
  - Arterial rupture [Recovered/Resolved]
  - Ulcer [Not Recovered/Not Resolved]
